FAERS Safety Report 7068251-8 (Version None)
Quarter: 2010Q4

REPORT INFORMATION
  Report Type: 
  Country: None (occurrence: None)
  Receive Date: 20101028
  Receipt Date: 20101019
  Transmission Date: 20110411
  Serious: Yes (Hospitalization)
  Sender: FDA-Public Use
  Company Number: DE-ROCHE-735822

PATIENT
  Age: 69 Year
  Sex: Female
  Weight: 64 kg

DRUGS (5)
  1. PEGINTERFERON ALFA-2A [Suspect]
     Indication: HEPATITIS C
     Dosage: FORM:SYRINGE
     Route: 030
     Dates: start: 20090522, end: 20090828
  2. RIBAVIRIN [Suspect]
     Indication: HEPATITIS C
     Route: 048
     Dates: start: 20090522, end: 20090903
  3. BLINDED BOCEPREVIR [Suspect]
     Indication: HEPATITIS C
     Dosage: DOSE BLINDED-TAKEN DAILY
     Route: 048
     Dates: start: 20090619, end: 20090904
  4. LEVOTHYROXINE SODIUM [Concomitant]
     Indication: HYPOTHYROIDISM
     Route: 048
     Dates: start: 19960101
  5. CITALOPRAM HYDROBROMIDE [Concomitant]
     Indication: DEPRESSION
     Route: 048
     Dates: start: 20060101

REACTIONS (2)
  - BUNION OPERATION [None]
  - TREATMENT FAILURE [None]
